FAERS Safety Report 17565584 (Version 7)
Quarter: 2020Q3

REPORT INFORMATION
  Report Type: Spontaneous
  Country: US (occurrence: US)
  Receive Date: 20200320
  Receipt Date: 20200916
  Transmission Date: 20201102
  Serious: No
  Sender: FDA-Public Use
  Company Number: US-PFIZER INC-2020120897

PATIENT
  Age: 77 Year
  Sex: Male
  Weight: 122.4 kg

DRUGS (6)
  1. DILANTIN [Suspect]
     Active Substance: PHENYTOIN
     Dosage: 500 MG, DAILY (1 CAPSULE THREE TIMES DAILY AND 2 CAPSULES AT BEDTIME)
     Route: 048
  2. DILANTIN [Suspect]
     Active Substance: PHENYTOIN
     Indication: IDIOPATHIC PARTIAL EPILEPSY
     Dosage: 500 MG, DAILY (1 CAPSULE THREE TIMES DAILY AND 2 CAPSULES AT BEDTIME)
     Route: 048
  3. DILANTIN [Suspect]
     Active Substance: PHENYTOIN
     Dosage: UNK, 1X/DAY (ON 1?2 DILANTIN A DAY)
  4. PHENOBARBITAL. [Concomitant]
     Active Substance: PHENOBARBITAL
     Dosage: 32.4 MG, 4X/DAY
     Dates: start: 1960
  5. DILANTIN [Suspect]
     Active Substance: PHENYTOIN
     Dosage: 500 MG, DAILY (5 DF A DAY)
     Dates: start: 1960
  6. LEVETIRACETAM. [Concomitant]
     Active Substance: LEVETIRACETAM
     Dosage: UNK, DAILY (2 AND HALF  TABLETS A DAY 500 MG)
     Dates: start: 2018

REACTIONS (2)
  - Memory impairment [Unknown]
  - Hypoacusis [Unknown]
